FAERS Safety Report 20717487 (Version 1)
Quarter: 2022Q2

REPORT INFORMATION
  Report Type: Spontaneous
  Country: FR (occurrence: FR)
  Receive Date: 20220417
  Receipt Date: 20220417
  Transmission Date: 20220721
  Serious: Yes (Hospitalization)
  Sender: FDA-Public Use
  Company Number: None

PATIENT
  Age: 85 Year
  Sex: Male
  Weight: 60 kg

DRUGS (14)
  1. ONDANSETRON [Suspect]
     Active Substance: ONDANSETRON
     Dosage: UNIT DOSE: 4 MG, FREQUENCY TIME 1 DAY, DURATION 1 DAY
     Route: 048
     Dates: start: 20220312, end: 20220313
  2. TELMISARTAN [Suspect]
     Active Substance: TELMISARTAN
     Indication: Hypertension
     Dosage: UNIT DOSE: 160 MG, FREQUENCY TIME 1 DAY, THERAPY START DATE : ASKU
     Route: 048
     Dates: end: 20220314
  3. HYDROCHLOROTHIAZIDE [Suspect]
     Active Substance: HYDROCHLOROTHIAZIDE
     Indication: Hypertension
     Dosage: UNIT DOSE: 7.5 MG, FREQUENCY TIME 1 DAY, THERAPY START DATE : ASKU
     Route: 048
     Dates: end: 20220314
  4. ACLASTA [Suspect]
     Active Substance: ZOLEDRONIC ACID
     Indication: Osteoporosis
     Dosage: UNIT DOSE: 5 MG, STRENGTH: 5 MG, FREQUENCY TIME 1 TOTAL, DURATION 1 DAY
     Route: 042
     Dates: start: 20220303, end: 20220303
  5. MELATONIN [Suspect]
     Active Substance: MELATONIN
     Dosage: UNIT DOSE: 2 MG, FREQUENCY TIME 1 DAY, DURATION 5 DAYS
     Route: 048
     Dates: start: 20220307, end: 20220312
  6. NEBIVOLOL [Concomitant]
     Active Substance: NEBIVOLOL
     Dosage: UNIT DOSE: 5 MG, FREQUENCY TIME 1 DAY, THERAPY START DATE : ASKU
     Route: 048
     Dates: end: 20220313
  7. ATORVASTATIN [Concomitant]
     Active Substance: ATORVASTATIN
     Dosage: UNIT DOSE: 40 MG, THERAPY START DATE : ASKU, FREQUENCY TIME 1 DAY
     Route: 048
     Dates: end: 20220314
  8. LACTULOSE [Concomitant]
     Active Substance: LACTULOSE
     Dosage: IF NECESSARY, UNIT DOSE: 2 DF, FREQUENCY TIME 1 DAY, THERAPY START DATE : ASKU
     Route: 048
     Dates: end: 20220314
  9. MIRTAZAPINE [Concomitant]
     Active Substance: MIRTAZAPINE
     Dosage: UNIT DOSE: 30 MG, THERAPY START DATE : ASKU, FREQUENCY TIME 1 DAY
     Route: 048
     Dates: end: 20220313
  10. FOLIC ACID [Concomitant]
     Active Substance: FOLIC ACID
     Dosage: ACIDE FOLIQUE, UNIT DOSE: 5 MG, FREQUENCY TIME 1 DAY, DURATION 17 DAYS
     Route: 048
     Dates: start: 20220225, end: 20220314
  11. SOLIFENACIN [Concomitant]
     Active Substance: SOLIFENACIN
     Dosage: UNIT DOSE: 20 MG, THERAPY START DATE : ASKU, FREQUENCY TIME 1 DAY
     Route: 048
     Dates: end: 20220302
  12. PHLOROGLUCINOL [Concomitant]
     Active Substance: PHLOROGLUCINOL
     Dosage: UNIT DOSE: 80 MG, STRENGTH: 80 MG, FREQUENCY TIME 1 TOTAL, DURATION 1 DAY
     Route: 048
     Dates: start: 20220309, end: 20220309
  13. ELIQUIS [Concomitant]
     Active Substance: APIXABAN
     Dosage: UNIT DOSE: 5 MG, THERAPY START DATE : ASKU, STRENGTH: 2.5 MG, FREQUENCY TIME 1 DAY
     Route: 048
     Dates: end: 20220314
  14. CALCIUM PHOSPHATE, DIBASIC, ANHYDROUS\MAGNESIUM GLYCEROPHOSPHATE\PHOSP [Concomitant]
     Active Substance: CALCIUM PHOSPHATE, DIBASIC, ANHYDROUS\MAGNESIUM GLYCEROPHOSPHATE\PHOSPHORIC ACID\SODIUM PHOSPHATE, D
     Dosage: THERAPY START DATE AND END DATE : ASKU, UNIT DOSE: 100 GTT, FREQUENCY TIME 1 DAY
     Route: 048

REACTIONS (1)
  - Acute kidney injury [Not Recovered/Not Resolved]

NARRATIVE: CASE EVENT DATE: 20220314
